FAERS Safety Report 6158462-8 (Version None)
Quarter: 2009Q2

REPORT INFORMATION
  Report Type: 
  Country: None (occurrence: None)
  Receive Date: 20090417
  Receipt Date: 20090410
  Transmission Date: 20091009
  Serious: Yes (Other)
  Sender: FDA-Public Use
  Company Number: US-BAYER-200918091NA

PATIENT
  Age: 69 Year
  Sex: Male
  Weight: 79 kg

DRUGS (3)
  1. BETAPACE [Suspect]
     Indication: ATRIAL FIBRILLATION
     Dosage: AS USED: 80 MG
     Dates: start: 20090410
  2. LISINOPRIL [Concomitant]
  3. WARFARIN SODIUM [Concomitant]

REACTIONS (1)
  - VISION BLURRED [None]
